FAERS Safety Report 8353793-5 (Version None)
Quarter: 2012Q2

REPORT INFORMATION
  Report Type: 
  Country: None (occurrence: None)
  Receive Date: 20120511
  Receipt Date: 20111122
  Transmission Date: 20120825
  Serious: No
  Sender: FDA-Public Use
  Company Number: US-GLAXOSMITHKLINE-A0954336A

PATIENT
  Age: 31 Year
  Sex: Female

DRUGS (4)
  1. XELODA [Suspect]
     Route: 065
  2. CALCIUM [Concomitant]
  3. TYKERB [Suspect]
     Indication: BREAST CANCER
     Dosage: 1250MG PER DAY
     Route: 048
     Dates: start: 20111115
  4. ONE A DAY [Concomitant]

REACTIONS (5)
  - RASH [None]
  - DIZZINESS [None]
  - DIARRHOEA [None]
  - NAUSEA [None]
  - ILL-DEFINED DISORDER [None]
